FAERS Safety Report 16757101 (Version 4)
Quarter: 2019Q3

REPORT INFORMATION
  Report Type: Report from Study
  Country: BR (occurrence: BR)
  Receive Date: 20190829
  Receipt Date: 20190930
  Transmission Date: 20191005
  Serious: Yes (Death, Life-Threatening, Hospitalization)
  Sender: FDA-Public Use
  Company Number: BR-REGENERON PHARMACEUTICALS, INC.-2019-46162

PATIENT

DRUGS (4)
  1. CEMIPLIMAB [Suspect]
     Active Substance: CEMIPLIMAB
     Indication: NON-SMALL CELL LUNG CANCER STAGE IIIB
     Dosage: 350 MG, Q3W
     Route: 042
     Dates: start: 20190604
  2. PARACETAMOL [Concomitant]
     Active Substance: ACETAMINOPHEN
     Indication: BACK PAIN
     Dosage: UNK
  3. ALENIA                             /01538101/ [Concomitant]
     Active Substance: BUDESONIDE\FORMOTEROL FUMARATE
     Indication: CHRONIC OBSTRUCTIVE PULMONARY DISEASE
     Dosage: UNK
  4. DIPIRONE [Concomitant]
     Active Substance: METAMIZOLE SODIUM
     Indication: CHRONIC OBSTRUCTIVE PULMONARY DISEASE
     Dosage: UNK

REACTIONS (2)
  - Septic shock [Fatal]
  - Pneumonitis [Not Recovered/Not Resolved]

NARRATIVE: CASE EVENT DATE: 20190802
